FAERS Safety Report 10026649 (Version 2)
Quarter: 2014Q1

REPORT INFORMATION
  Report Type: Report from Study
  Country: US (occurrence: US)
  Receive Date: 20140321
  Receipt Date: 20140321
  Transmission Date: 20141002
  Serious: Yes (Other)
  Sender: FDA-Public Use
  Company Number: US-ROCHE-1361969

PATIENT
  Age: 33 Year
  Sex: Female
  Weight: 59.93 kg

DRUGS (2)
  1. PEGASYS [Suspect]
     Indication: HEPATITIS C
     Route: 058
     Dates: start: 20140106, end: 20140306
  2. COPEGUS [Suspect]
     Indication: HEPATITIS C
     Route: 048
     Dates: start: 20140106

REACTIONS (2)
  - Leukopenia [Recovered/Resolved]
  - Pneumonia [Unknown]
